FAERS Safety Report 11771983 (Version 1)
Quarter: 2015Q4

REPORT INFORMATION
  Report Type: Spontaneous
  Country: US (occurrence: None)
  Receive Date: 20151123
  Receipt Date: 20151123
  Transmission Date: 20160304
  Serious: Yes (Life-Threatening)
  Sender: FDA-Public Use
  Company Number: None

PATIENT
  Age: 67 Year
  Sex: Female
  Weight: 65.77 kg

DRUGS (3)
  1. LYSINE [Concomitant]
     Active Substance: LYSINE
  2. MULTIPLE VITAMIN [Concomitant]
     Active Substance: VITAMINS
  3. ERBITUX [Suspect]
     Active Substance: CETUXIMAB
     Indication: COLORECTAL CANCER METASTATIC
     Dosage: NOT SURE ONCE A WEEK THROUGH MEDI PORT IN CHEST
     Dates: start: 20151110, end: 20151110

REACTIONS (8)
  - Swollen tongue [None]
  - Vomiting [None]
  - Dyspnoea [None]
  - Pruritus [None]
  - Skin burning sensation [None]
  - Blood pressure decreased [None]
  - Lip swelling [None]
  - Blister [None]

NARRATIVE: CASE EVENT DATE: 20151110
